FAERS Safety Report 4631860-7 (Version None)
Quarter: 2005Q2

REPORT INFORMATION
  Report Type: 
  Country: None (occurrence: None)
  Receive Date: 20050331
  Receipt Date: 20040517
  Transmission Date: 20051028
  Serious: Yes (Hospitalization)
  Sender: FDA-Public Use
  Company Number: 04P-163-0261066-00

PATIENT
  Age: 28 Year
  Sex: Male

DRUGS (1)
  1. BIAXIN XL [Suspect]
     Indication: UPPER RESPIRATORY TRACT INFECTION
     Dosage: 500 MG, 2 IN 1 D, PER ORAL
     Route: 048
     Dates: start: 20040415, end: 20040418

REACTIONS (1)
  - PANCREATITIS [None]
